FAERS Safety Report 7224356-X (Version None)
Quarter: 2011Q1

REPORT INFORMATION
  Report Type: 
  Country: None (occurrence: None)
  Receive Date: 20110104
  Receipt Date: 20101224
  Transmission Date: 20110831
  Serious: Yes (Other)
  Sender: FDA-Public Use
  Company Number: 2010AP002694

PATIENT
  Age: 62 Year
  Sex: Male
  Weight: 103.4 kg

DRUGS (22)
  1. FISH OIL [Concomitant]
  2. ZINC [Concomitant]
  3. ASCORBIC ACID [Concomitant]
  4. THIOCTIC ACID [Concomitant]
  5. AMLODIPINE BESYLATE [Suspect]
     Indication: HYPERTENSION
     Dosage: 10 MG; QD; PO
     Route: 048
     Dates: start: 20100101
  6. WARFARIN [Concomitant]
  7. VITAMIN B-COMPLEX [Concomitant]
  8. MAGNESIUM [Concomitant]
  9. FUROSEMIDE [Concomitant]
  10. SELENIUM [Concomitant]
  11. COLECALCIFEROL [Concomitant]
  12. GABAPENTIN [Concomitant]
  13. SERENOA REPENS [Concomitant]
  14. LYRICA [Suspect]
     Indication: NEUROPATHY PERIPHERAL
     Dosage: 50 MG; TID; PO
     Route: 048
     Dates: start: 20080101
  15. METOPROLOL [Concomitant]
  16. ALLOPURINOL [Concomitant]
  17. GEMFIBROZIL [Concomitant]
  18. BACLOFEN [Concomitant]
  19. MINERAL TAB [Concomitant]
  20. ENALAPRIL MALEATE [Concomitant]
  21. SITOSTEROL [Concomitant]
  22. CALCIUM CITRATE [Concomitant]

REACTIONS (5)
  - BURNING SENSATION [None]
  - TREMOR [None]
  - PROTEIN S ABNORMAL [None]
  - C-REACTIVE PROTEIN ABNORMAL [None]
  - PARAESTHESIA [None]
